FAERS Safety Report 4791631-8 (Version None)
Quarter: 2005Q4

REPORT INFORMATION
  Report Type: 
  Country: None (occurrence: None)
  Receive Date: 20051007
  Receipt Date: 20050929
  Transmission Date: 20060501
  Serious: Yes (Death, Hospitalization)
  Sender: FDA-Public Use
  Company Number: US-KINGPHARMUSA00001-K200501286

PATIENT
  Age: 15 Year
  Sex: Male

DRUGS (3)
  1. NUCOFED EXPECTORANT SYRUP [Suspect]
     Route: 048
  2. ACETAMINOPHEN [Suspect]
     Dosage: 500 MG
     Route: 048
  3. BUPRENORPHINE [Suspect]
     Route: 048

REACTIONS (21)
  - ACTIVATED PARTIAL THROMBOPLASTIN TIME SHORTENED [None]
  - ALANINE AMINOTRANSFERASE INCREASED [None]
  - AMMONIA INCREASED [None]
  - ANALGESIC DRUG LEVEL INCREASED [None]
  - ASPARTATE AMINOTRANSFERASE INCREASED [None]
  - BLOOD BILIRUBIN INCREASED [None]
  - BLOOD CREATININE INCREASED [None]
  - BLOOD PRESSURE INCREASED [None]
  - BRAIN HERNIATION [None]
  - BRAIN OEDEMA [None]
  - CEREBRAL CIRCULATORY FAILURE [None]
  - COMPLETED SUICIDE [None]
  - ENCEPHALOPATHY [None]
  - HEPATIC FUNCTION ABNORMAL [None]
  - HEPATIC NECROSIS [None]
  - INTERNATIONAL NORMALISED RATIO INCREASED [None]
  - LOSS OF CONSCIOUSNESS [None]
  - MULTIPLE DRUG OVERDOSE [None]
  - OVERDOSE [None]
  - PROTHROMBIN TIME PROLONGED [None]
  - PUPIL FIXED [None]
